FAERS Safety Report 16377014 (Version 1)
Quarter: 2019Q3

REPORT INFORMATION
  Report Type: Spontaneous
  Country: US (occurrence: US)
  Receive Date: 20190530
  Receipt Date: 20190530
  Transmission Date: 20191004
  Serious: Yes (Hospitalization)
  Sender: FDA-Public Use
  Company Number: None

PATIENT
  Age: 83 Year
  Sex: Male
  Weight: 67.5 kg

DRUGS (10)
  1. ELIQUIS [Concomitant]
     Active Substance: APIXABAN
  2. HCTZ [Concomitant]
     Active Substance: HYDROCHLOROTHIAZIDE
  3. MIRALAX [Concomitant]
     Active Substance: POLYETHYLENE GLYCOL 3350
  4. TRELEGY ELLIPTA [Suspect]
     Active Substance: FLUTICASONE FUROATE\UMECLIDINIUM BROMIDE\VILANTEROL TRIFENATATE
     Indication: CHRONIC OBSTRUCTIVE PULMONARY DISEASE
     Dosage: ?          QUANTITY:1 PUFF(S);?
     Route: 055
  5. ADVAIR DISKUS [Concomitant]
     Active Substance: FLUTICASONE PROPIONATE\SALMETEROL XINAFOATE
  6. TAMSULOSIN [Concomitant]
     Active Substance: TAMSULOSIN
  7. METOPROLOL. [Concomitant]
     Active Substance: METOPROLOL
  8. VITAMIN D3 [Concomitant]
     Active Substance: CHOLECALCIFEROL
  9. ATORVASTATIN [Concomitant]
     Active Substance: ATORVASTATIN
  10. VERAPAMIL [Concomitant]
     Active Substance: VERAPAMIL HYDROCHLORIDE

REACTIONS (2)
  - Urinary tract infection [None]
  - Urinary retention [None]

NARRATIVE: CASE EVENT DATE: 20190505
